FAERS Safety Report 10026739 (Version 1)
Quarter: 2014Q1

REPORT INFORMATION
  Report Type: Spontaneous
  Country: CA (occurrence: CA)
  Receive Date: 20140321
  Receipt Date: 20140321
  Transmission Date: 20141002
  Serious: Yes (Other)
  Sender: FDA-Public Use
  Company Number: CA-AMGEN-CANSP2014018930

PATIENT
  Age: 55 Year
  Sex: Female

DRUGS (11)
  1. ENBREL [Suspect]
     Indication: RHEUMATOID ARTHRITIS
     Dosage: 50 MG, UNK
     Route: 065
     Dates: start: 20130729
  2. SULFASALAZINE [Concomitant]
     Dosage: UNK
  3. MTX                                /00113801/ [Concomitant]
     Dosage: UNK
  4. CREATINE [Concomitant]
     Dosage: UNK
  5. SUDAFED                            /00076302/ [Concomitant]
     Dosage: UNK UNK, AS NECESSARY
  6. VITAMIN C                          /00008001/ [Concomitant]
     Dosage: UNK
  7. VITAMIN D                          /00107901/ [Concomitant]
     Dosage: UNK
  8. VITAMIN B COMPLEX [Concomitant]
     Dosage: UNK
  9. FOLIC ACID [Concomitant]
     Dosage: UNK
  10. CALCIUM [Concomitant]
     Dosage: UNK
  11. OMEGA 3                            /01334101/ [Concomitant]
     Dosage: UNK

REACTIONS (2)
  - Weight increased [Not Recovered/Not Resolved]
  - Increased appetite [Not Recovered/Not Resolved]
